FAERS Safety Report 10037899 (Version 1)
Quarter: 2014Q1

REPORT INFORMATION
  Report Type: Spontaneous
  Country: US (occurrence: None)
  Receive Date: 20140306
  Receipt Date: 20140306
  Transmission Date: 20141002
  Serious: Yes (Hospitalization, Disabling, Other)
  Sender: FDA-Public Use
  Company Number: 163-21880-13062318

PATIENT
  Age: 68 Year
  Sex: Male

DRUGS (8)
  1. REVLIMID (LENALIDOMIDE) (25 MILLIGRAM, CAPSULES) [Suspect]
     Indication: PLASMA CELL MYELOMA
     Dosage: 25 MG, 1 IN 1 D, PO
     Route: 048
     Dates: start: 20101117
  2. ACYCLOVIR (ACICLOVIR) (UNKNOWN) [Concomitant]
  3. ASPIRIN (ACETYSALICYLIC ACID) (UNKNOWN) [Concomitant]
  4. LOSARTAN POTASSIUM (LOSARTAN POTASSIUM) (UNKNOWN) [Concomitant]
  5. METOPROLOL TARTRATE (METOPROLOL TARTRATE) (UNKNOWN) [Concomitant]
  6. SYMBICORT (SYMBICORT TURBUHALER ^DRACO^) (UNKNOWN)? [Concomitant]
  7. VYTORIN (INEGY) (UNKNOWN) [Concomitant]
  8. ZOMETA (ZOLEDRONIC ACID) (UNKNOWN) [Concomitant]

REACTIONS (5)
  - Fatigue [None]
  - Pneumonia [None]
  - Diarrhoea [None]
  - Asthenia [None]
  - Decreased appetite [None]
